FAERS Safety Report 9100682 (Version 1)
Quarter: 2013Q1

REPORT INFORMATION
  Report Type: Spontaneous
  Country: TR (occurrence: TR)
  Receive Date: 20130215
  Receipt Date: 20130215
  Transmission Date: 20140127
  Serious: Yes (Hospitalization, Other)
  Sender: FDA-Public Use
  Company Number: TR-UCBSA-078007

PATIENT
  Age: 43 Year
  Sex: Female

DRUGS (9)
  1. VIMPAT [Suspect]
     Indication: EPILEPSY
     Dosage: STRENGTH: 200 MG
     Route: 048
     Dates: start: 20110925, end: 20120720
  2. ZIPRASIDONE [Suspect]
     Dosage: 28 TABLETS
     Dates: start: 20120328
  3. LORNOXICAM [Suspect]
     Dosage: 20 TABLETS
     Dates: start: 20120328
  4. LEVETIRACETAM [Concomitant]
     Indication: EPILEPSY
     Route: 048
  5. VERAPAMIL [Concomitant]
     Indication: HYPERTENSION
     Route: 048
  6. LAMOTRIGIN [Concomitant]
     Indication: EPILEPSY
     Route: 048
  7. PRIMIDONE [Concomitant]
     Indication: EPILEPSY
     Route: 048
  8. VENLAFAXINE [Concomitant]
     Indication: DEPRESSION
     Route: 048
  9. PROPRANOLOL [Concomitant]
     Indication: HYPERTENSION
     Route: 048

REACTIONS (3)
  - Suicide attempt [Recovered/Resolved]
  - Anxiety [Unknown]
  - Affective disorder [Unknown]
